FAERS Safety Report 18818111 (Version 2)
Quarter: 2021Q1

REPORT INFORMATION
  Report Type: Other
  Country: PT (occurrence: PT)
  Receive Date: 20210201
  Receipt Date: 20210304
  Transmission Date: 20210419
  Serious: Yes (Life-Threatening, Hospitalization, Other)
  Sender: FDA-Public Use
  Company Number: PT-DENTSPLY-2021SCDP000025

PATIENT
  Age: 43 Year
  Sex: Male
  Weight: 65 kg

DRUGS (1)
  1. XYLOCAINE [Suspect]
     Active Substance: LIDOCAINE HYDROCHLORIDE
     Indication: LOCAL ANAESTHESIA
     Dosage: 20 MILLIGRAM, NASAL SPRAY
     Route: 045

REACTIONS (3)
  - Anaphylactic shock [None]
  - Type I hypersensitivity [None]
  - Atrial fibrillation [Recovered/Resolved]
